FAERS Safety Report 23946717 (Version 4)
Quarter: 2024Q4

REPORT INFORMATION
  Report Type: Spontaneous
  Country: US (occurrence: US)
  Receive Date: 20240606
  Receipt Date: 20241218
  Transmission Date: 20250114
  Serious: No
  Sender: PFIZER
  Company Number: US-PFIZER INC-202400187476

PATIENT
  Age: 75 Year
  Sex: Female

DRUGS (2)
  1. TUKYSA [Suspect]
     Active Substance: TUCATINIB
     Dosage: 150 MG, 2X/DAY
  2. TUKYSA [Suspect]
     Active Substance: TUCATINIB
     Dosage: 50 MG, 3 TABLETS

REACTIONS (3)
  - Influenza [Recovering/Resolving]
  - Malaise [Unknown]
  - Suspected COVID-19 [Unknown]

NARRATIVE: CASE EVENT DATE: 20240512
